FAERS Safety Report 7510103-0 (Version None)
Quarter: 2011Q2

REPORT INFORMATION
  Report Type: 
  Country: None (occurrence: None)
  Receive Date: 20110527
  Receipt Date: 20110523
  Transmission Date: 20111010
  Serious: Yes (Life-Threatening)
  Sender: FDA-Public Use
  Company Number: GB-PFIZER INC-2011102830

PATIENT
  Age: 57 Year
  Sex: Male

DRUGS (2)
  1. VARENICLINE TARTRATE [Suspect]
     Indication: SMOKING CESSATION THERAPY
     Dosage: 1 G, 2X/DAY
     Route: 048
     Dates: start: 20110311, end: 20110407
  2. IBUPROFEN [Concomitant]
     Dosage: 200 MG, SINGLE
     Route: 048
     Dates: start: 20110404, end: 20110404

REACTIONS (2)
  - HAEMOGLOBIN DECREASED [None]
  - HAEMATEMESIS [None]
